FAERS Safety Report 23279613 (Version 1)
Quarter: 2023Q4

REPORT INFORMATION
  Report Type: Spontaneous
  Country: US (occurrence: US)
  Receive Date: 20231210
  Receipt Date: 20231210
  Transmission Date: 20240110
  Serious: Yes (Death, Other)
  Sender: FDA-Public Use
  Company Number: US-ENDO-CASE-0049244

PATIENT
  Sex: Male

DRUGS (7)
  1. PERCOCET [Suspect]
     Active Substance: ACETAMINOPHEN\OXYCODONE HYDROCHLORIDE
  2. IBUPROFEN [Suspect]
     Active Substance: IBUPROFEN
  3. FENTANYL [Suspect]
     Active Substance: FENTANYL\FENTANYL CITRATE
  4. HYDROCODONE [Suspect]
     Active Substance: HYDROCODONE
  5. CODEINE [Suspect]
     Active Substance: CODEINE
  6. ACETAMINOPHEN [Suspect]
     Active Substance: ACETAMINOPHEN
  7. MORPHINE [Suspect]
     Active Substance: MORPHINE

REACTIONS (5)
  - Death [Fatal]
  - Overdose [Unknown]
  - Dependence [Unknown]
  - Non-Hodgkin^s lymphoma [Unknown]
  - Back injury [Unknown]
